FAERS Safety Report 18288621 (Version 1)
Quarter: 2020Q3

REPORT INFORMATION
  Report Type: Spontaneous
  Country: CN (occurrence: CN)
  Receive Date: 20200921
  Receipt Date: 20200921
  Transmission Date: 20201103
  Serious: Yes (Hospitalization)
  Sender: FDA-Public Use
  Company Number: CN-STRIDES ARCOLAB LIMITED-2020SP011058

PATIENT
  Age: 58 Year
  Sex: Male

DRUGS (4)
  1. VANCOMYCIN [Suspect]
     Active Substance: VANCOMYCIN
     Indication: CORYNEBACTERIUM INFECTION
     Dosage: 1 GRAM, BID
     Route: 042
     Dates: start: 201812
  2. TEICOPLANIN [Suspect]
     Active Substance: TEICOPLANIN
     Indication: STAPHYLOCOCCAL INFECTION
     Dosage: 0.4 GRAM, BID
     Route: 042
     Dates: start: 201901, end: 20190129
  3. LEVOFLOXACIN. [Concomitant]
     Active Substance: LEVOFLOXACIN
     Indication: CORYNEBACTERIUM INFECTION
     Dosage: UNK
     Route: 065
     Dates: start: 201812
  4. TEICOPLANIN [Suspect]
     Active Substance: TEICOPLANIN
     Indication: CORYNEBACTERIUM INFECTION

REACTIONS (6)
  - Drug reaction with eosinophilia and systemic symptoms [Unknown]
  - Rash [Recovered/Resolved]
  - Lymphadenopathy [Unknown]
  - Flushing [Unknown]
  - Therapeutic product cross-reactivity [Unknown]
  - Pyrexia [Recovered/Resolved]

NARRATIVE: CASE EVENT DATE: 2019
